FAERS Safety Report 6303346-5 (Version None)
Quarter: 2009Q3

REPORT INFORMATION
  Report Type: 
  Country: None (occurrence: None)
  Receive Date: 20090810
  Receipt Date: 20090731
  Transmission Date: 20100115
  Serious: Yes (Hospitalization)
  Sender: FDA-Public Use
  Company Number: US-NAPPMUNDI-USA-2009-0039220

PATIENT
  Sex: Female

DRUGS (22)
  1. OXYCONTIN [Suspect]
     Indication: PAIN
     Dosage: 640 MG, DAILY
     Dates: end: 20090101
  2. OXYCONTIN [Suspect]
     Dosage: 320 MG, DAILY
     Dates: start: 20090101
  3. PERCOCET [Suspect]
     Indication: BREAKTHROUGH PAIN
     Dosage: 10 MG, Q12H PRN
     Route: 048
  4. LANTUS [Concomitant]
     Indication: DIABETES MELLITUS
     Dosage: 30 UNIT, DAILY
     Route: 058
  5. ACTOS [Concomitant]
     Indication: DIABETES MELLITUS
     Dosage: 45 MG, DAILY
     Route: 048
  6. VESICARE                           /01735901/ [Concomitant]
     Dosage: 5 MG, HS
     Route: 048
  7. COZAAR [Concomitant]
     Dosage: 50 MG, BID
     Route: 048
  8. LASIX [Concomitant]
     Dosage: 40 MG, DAILY
     Route: 048
  9. PAXIL [Concomitant]
     Dosage: 25 MG, DAILY
     Route: 048
  10. XANAX [Concomitant]
     Dosage: 2 MG, Q8H PRN
     Route: 048
  11. PHENERGAN HCL [Concomitant]
     Indication: NAUSEA
     Dosage: 25 MG, PRN
  12. PROTONIX                           /01263201/ [Concomitant]
     Dosage: 40 MG, DAILY
  13. RAZADYNE [Concomitant]
     Indication: DEMENTIA
     Dosage: 16 MG, DAILY
     Route: 048
  14. POTASSIUM CHLORIDE [Concomitant]
     Dosage: UNK
  15. NORVASC [Concomitant]
     Dosage: 5 MG, DAILY
     Route: 048
  16. NITROGLYCERIN [Concomitant]
     Dosage: 0.4 MG, PRN
     Route: 060
  17. NYSTATIN [Concomitant]
     Dosage: UNK
  18. ACETYLSALICYLIC ACID [Concomitant]
     Dosage: 81 MG, DAILY
     Route: 048
  19. FERROUS SULFATE TAB [Concomitant]
     Dosage: 325 MG, DAILY
     Route: 048
  20. FOLIC ACID [Concomitant]
     Dosage: 1 MG, DAILY
     Route: 048
  21. POTASSIUM CHLORIDE [Concomitant]
     Dosage: 40 MEQ, DAILY
  22. LEVAQUIN [Concomitant]
     Dosage: 500 MG, DAILY
     Route: 048

REACTIONS (6)
  - DIARRHOEA [None]
  - DRUG WITHDRAWAL SYNDROME [None]
  - ELECTROLYTE IMBALANCE [None]
  - MALAISE [None]
  - NAUSEA [None]
  - URINARY TRACT INFECTION [None]
